FAERS Safety Report 15668937 (Version 3)
Quarter: 2018Q4

REPORT INFORMATION
  Report Type: Report from Study
  Country: DE (occurrence: DE)
  Receive Date: 20181129
  Receipt Date: 20181220
  Transmission Date: 20190205
  Serious: No
  Sender: FDA-Public Use
  Company Number: DE-ROCHE-2222324

PATIENT
  Age: 34 Year
  Sex: Female
  Weight: 69 kg

DRUGS (9)
  1. OCRELIZUMAB. [Suspect]
     Active Substance: OCRELIZUMAB
     Indication: MULTIPLE SCLEROSIS
     Dosage: DATE OF MOST RECENT DOSE: 19/JUN/2018
     Route: 042
     Dates: start: 20180605
  2. IBUPROFEN. [Concomitant]
     Active Substance: IBUPROFEN
     Indication: MYALGIA
     Route: 048
     Dates: start: 20180928
  3. PANTOPRAZOL [Concomitant]
     Active Substance: PANTOPRAZOLE SODIUM
     Indication: CHRONIC GASTRITIS
     Route: 048
     Dates: start: 20181015
  4. AIDA (GERMANY) [Concomitant]
     Indication: CONTRACEPTION
     Dosage: 0.02MG/3 MG
     Route: 048
     Dates: start: 2008
  5. PREDNIFLUID [Concomitant]
     Indication: UVEITIS
     Route: 047
     Dates: start: 20181122
  6. METHYPRED [Concomitant]
     Indication: PREMEDICATION
     Route: 042
     Dates: start: 20180605, end: 20180605
  7. FENISTIL (GERMANY) [Concomitant]
     Active Substance: DIMETHINDENE MALEATE
     Route: 042
     Dates: start: 20180605, end: 20180605
  8. METHYPRED [Concomitant]
     Indication: PREMEDICATION
     Route: 042
     Dates: start: 20180619, end: 20180619
  9. FENISTIL (GERMANY) [Concomitant]
     Active Substance: DIMETHINDENE MALEATE
     Indication: PREMEDICATION
     Route: 042
     Dates: start: 20180619, end: 20180619

REACTIONS (1)
  - Helicobacter infection [Recovered/Resolved]

NARRATIVE: CASE EVENT DATE: 20181018
